FAERS Safety Report 5742635-X (Version None)
Quarter: 2008Q2

REPORT INFORMATION
  Report Type: 
  Country: None (occurrence: None)
  Receive Date: 20080515
  Receipt Date: 20080515
  Transmission Date: 20081010
  Serious: Yes (Death, Life-Threatening, Hospitalization, Disabling)
  Sender: FDA-Public Use
  Company Number: None

PATIENT
  Age: 79 Year
  Sex: Male
  Weight: 63.5036 kg

DRUGS (2)
  1. ARANESP [Suspect]
     Indication: ANAEMIA
     Dates: start: 20071026, end: 20080118
  2. PROCRIT [Suspect]

REACTIONS (8)
  - ABASIA [None]
  - ASTHENIA [None]
  - CARDIAC FAILURE [None]
  - DIARRHOEA [None]
  - DYSPNOEA [None]
  - EATING DISORDER [None]
  - OEDEMA PERIPHERAL [None]
  - RENAL FAILURE [None]
